FAERS Safety Report 6552106-9 (Version None)
Quarter: 2010Q1

REPORT INFORMATION
  Report Type: 
  Country: None (occurrence: None)
  Receive Date: 20100126
  Receipt Date: 20100115
  Transmission Date: 20100710
  Serious: Yes (Life-Threatening, Hospitalization)
  Sender: FDA-Public Use
  Company Number: US-JNJFOC-20100106141

PATIENT
  Sex: Female
  Weight: 56.25 kg

DRUGS (3)
  1. SIMPONI [Suspect]
     Indication: RHEUMATOID ARTHRITIS
     Route: 058
  2. SIMPONI [Suspect]
     Route: 058
  3. SIMPONI [Suspect]
     Route: 058

REACTIONS (9)
  - CHEST PAIN [None]
  - COUGH [None]
  - DECREASED APPETITE [None]
  - DIARRHOEA [None]
  - DYSPNOEA [None]
  - FATIGUE [None]
  - HEADACHE [None]
  - LETHARGY [None]
  - VOMITING [None]
